FAERS Safety Report 17000211 (Version 1)
Quarter: 2019Q4

REPORT INFORMATION
  Report Type: Spontaneous
  Country: US (occurrence: US)
  Receive Date: 20190926
  Receipt Date: 20190926
  Transmission Date: 20200122
  Serious: No
  Sender: FDA-Public Use
  Company Number: None

PATIENT
  Age: 64 Year
  Sex: Male

DRUGS (1)
  1. EPCLUSA [Suspect]
     Active Substance: SOFOSBUVIR\VELPATASVIR
     Route: 048
     Dates: start: 201908

REACTIONS (7)
  - Headache [None]
  - Fatigue [None]
  - Weight decreased [None]
  - Decreased appetite [None]
  - Diarrhoea [None]
  - Nasopharyngitis [None]
  - Infection [None]

NARRATIVE: CASE EVENT DATE: 20190926
